FAERS Safety Report 20645020 (Version 1)
Quarter: 2022Q1

REPORT INFORMATION
  Report Type: Spontaneous
  Country: US (occurrence: None)
  Receive Date: 20220328
  Receipt Date: 20220328
  Transmission Date: 20220423
  Serious: Yes (Hospitalization)
  Sender: FDA-Public Use
  Company Number: None

PATIENT
  Sex: Female

DRUGS (4)
  1. NUTROPIN AQ NUSPIN 5 [Suspect]
     Active Substance: SOMATROPIN
     Indication: Biliary cirrhosis
     Dosage: OTHER QUANTITY : 5MG/2ML;?FREQUENCY : AT BEDTIME;?
     Route: 058
     Dates: start: 20180525
  2. LEVOXYL TAB [Concomitant]
  3. LOVENOX INJ [Concomitant]
  4. WARFARIN TAB [Concomitant]

REACTIONS (2)
  - Hospitalisation [None]
  - Therapy interrupted [None]
